FAERS Safety Report 23225430 (Version 4)
Quarter: 2024Q1

REPORT INFORMATION
  Report Type: Report from Study
  Country: CL (occurrence: CL)
  Receive Date: 20231124
  Receipt Date: 20240207
  Transmission Date: 20240409
  Serious: Yes (Hospitalization)
  Sender: FDA-Public Use
  Company Number: CL-002147023-NVSC2023CL250173

PATIENT
  Sex: Female

DRUGS (5)
  1. NILOTINIB [Suspect]
     Active Substance: NILOTINIB
     Indication: Chronic myeloid leukaemia
     Dosage: UNK (BY MOUTH)
     Route: 048
  2. NILOTINIB [Suspect]
     Active Substance: NILOTINIB
     Dosage: 150 MG, TID (24 OCT 2023 OR 27 OCT 2023 UP UNTIL THE END OF DEC),  PATIENT USES DOSES OF 3 CAPSULES
     Route: 048
  3. NILOTINIB [Suspect]
     Active Substance: NILOTINIB
     Dosage: 150 MG (2 CAPSULES OF 150 MG IN THE MORNING AND THEN IN THE AFTERNOON ADMINISTERS ONLY ONE CAPSULE O
     Route: 048
  4. DASATINIB [Suspect]
     Active Substance: DASATINIB
     Indication: Chronic myeloid leukaemia
     Dosage: UNK (BY MOUTH)
     Route: 048
  5. PONATINIB [Concomitant]
     Active Substance: PONATINIB
     Indication: Product used for unknown indication
     Dosage: UNK
     Route: 065

REACTIONS (13)
  - Toxicity to various agents [Unknown]
  - Disease complication [Unknown]
  - Immunosuppression [Unknown]
  - Pleural effusion [Unknown]
  - Pericardial effusion [Unknown]
  - Colitis ulcerative [Unknown]
  - Oedema peripheral [Unknown]
  - Anaemia [Unknown]
  - Myelosuppression [Unknown]
  - Haemoglobin decreased [Unknown]
  - Platelet count decreased [Unknown]
  - Gene mutation [Unknown]
  - Incorrect dose administered [Unknown]
